FAERS Safety Report 14524641 (Version 4)
Quarter: 2019Q1

REPORT INFORMATION
  Report Type: Report from Study
  Country: US (occurrence: US)
  Receive Date: 20180213
  Receipt Date: 20190214
  Transmission Date: 20190417
  Serious: Yes (Hospitalization, Other)
  Sender: FDA-Public Use
  Company Number: US-TAKEDA-2018TUS003100

PATIENT
  Age: 54 Year
  Sex: Female

DRUGS (3)
  1. PONATINIB [Suspect]
     Active Substance: PONATINIB
     Dosage: 15 MILLIGRAM, QD
     Route: 048
  2. PONATINIB [Suspect]
     Active Substance: PONATINIB
     Dosage: 15 MG, QD
     Route: 048
     Dates: start: 201803
  3. PONATINIB [Suspect]
     Active Substance: PONATINIB
     Indication: CHRONIC MYELOID LEUKAEMIA
     Dosage: 30 MG, QD
     Route: 048
     Dates: start: 20170307

REACTIONS (14)
  - Bronchitis [Recovering/Resolving]
  - Night sweats [Recovered/Resolved]
  - Rash [Unknown]
  - Dysphonia [Unknown]
  - Weight decreased [Unknown]
  - Constipation [Unknown]
  - Adjustment disorder with depressed mood [Recovering/Resolving]
  - Nephrolithiasis [Unknown]
  - Bronchial hyperreactivity [Recovering/Resolving]
  - Dizziness [Unknown]
  - Drug intolerance [Unknown]
  - Myocardial infarction [Unknown]
  - Fatigue [Recovered/Resolved]
  - Arthralgia [Unknown]

NARRATIVE: CASE EVENT DATE: 20180207
